FAERS Safety Report 9475996 (Version 2)
Quarter: 2013Q3

REPORT INFORMATION
  Report Type: Spontaneous
  Country: SE (occurrence: SE)
  Receive Date: 20130826
  Receipt Date: 20130909
  Transmission Date: 20140515
  Serious: Yes (Other)
  Sender: FDA-Public Use
  Company Number: SE-ASTELLAS-2013US008979

PATIENT
  Sex: Male

DRUGS (1)
  1. TARCEVA [Suspect]
     Indication: PRODUCT USED FOR UNKNOWN INDICATION
     Dosage: UNK
     Route: 065

REACTIONS (7)
  - Muscle disorder [Unknown]
  - Hyperhidrosis [Unknown]
  - Muscle spasms [Unknown]
  - Musculoskeletal stiffness [Unknown]
  - Musculoskeletal stiffness [Unknown]
  - Muscle spasms [Unknown]
  - Thrombosis [Not Recovered/Not Resolved]
